FAERS Safety Report 17666012 (Version 1)
Quarter: 2020Q2

REPORT INFORMATION
  Report Type: Spontaneous
  Country: US (occurrence: US)
  Receive Date: 20200414
  Receipt Date: 20200414
  Transmission Date: 20200713
  Serious: No
  Sender: FDA-Public Use
  Company Number: None

PATIENT
  Age: 72 Year
  Sex: Female
  Weight: 51.75 kg

DRUGS (4)
  1. LOVASTATIN 20 MG... TEVA (IMPRINT ON REVERSE SIDE IS 576 [Suspect]
     Active Substance: LOVASTATIN
     Indication: BLOOD CHOLESTEROL INCREASED
     Dosage: ?          QUANTITY:1 TABLET(S);?
     Route: 048
     Dates: start: 20200401, end: 20200414
  2. LEVOTHYROXINE. [Concomitant]
     Active Substance: LEVOTHYROXINE
  3. CALCIUM/D3 [Concomitant]
     Active Substance: CALCIUM\CHOLECALCIFEROL
  4. VITAMIN B-COMPLEX [Concomitant]
     Active Substance: DEXPANTHENOL\NIACINAMIDE\PYRIDOXINE HYDROCHLORIDE\RIBOFLAVIN 5^-PHOSPHATE SODIUM\THIAMINE HYDROCHLORIDE

REACTIONS (3)
  - Discomfort [None]
  - Dry mouth [None]
  - Product substitution issue [None]

NARRATIVE: CASE EVENT DATE: 20200414
